FAERS Safety Report 16588760 (Version 1)
Quarter: 2019Q3

REPORT INFORMATION
  Report Type: Spontaneous
  Country: ZA (occurrence: ZA)
  Receive Date: 20190718
  Receipt Date: 20190718
  Transmission Date: 20191004
  Serious: Yes (Death)
  Sender: FDA-Public Use
  Company Number: ZA-VIFOR (INTERNATIONAL) INC.-VIT-2019-06885

PATIENT
  Age: 70 Year
  Sex: Female

DRUGS (1)
  1. MIRCERA [Suspect]
     Active Substance: METHOXY POLYETHYLENE GLYCOL-EPOETIN BETA
     Indication: CHRONIC KIDNEY DISEASE
     Route: 065

REACTIONS (2)
  - Product use in unapproved indication [Unknown]
  - Death [Fatal]

NARRATIVE: CASE EVENT DATE: 20190628
